FAERS Safety Report 7590775-5 (Version None)
Quarter: 2011Q3

REPORT INFORMATION
  Report Type: 
  Country: None (occurrence: None)
  Receive Date: 20110705
  Receipt Date: 20110622
  Transmission Date: 20111222
  Serious: Yes (Other)
  Sender: FDA-Public Use
  Company Number: PHHY2011DE43608

PATIENT
  Sex: Female
  Weight: 51 kg

DRUGS (3)
  1. VOTUM 20 [Concomitant]
     Indication: HYPERTENSION
     Dosage: 20 MG PER DAY
  2. ZOLEDRONIC ACID [Suspect]
     Indication: OSTEOPOROSIS POSTMENOPAUSAL
     Dosage: 5 MG ONCE YEARLY
     Route: 042
     Dates: start: 20100428
  3. CARVEDILOL [Concomitant]
     Indication: HYPERTENSION
     Dosage: 25MG/DAY

REACTIONS (4)
  - EXPOSED BONE IN JAW [None]
  - PAIN [None]
  - OSTEONECROSIS OF JAW [None]
  - BONE ATROPHY [None]
